FAERS Safety Report 21249140 (Version 4)
Quarter: 2023Q1

REPORT INFORMATION
  Report Type: Spontaneous
  Country: PT (occurrence: PT)
  Receive Date: 20220824
  Receipt Date: 20230110
  Transmission Date: 20230417
  Serious: Yes (Other)
  Sender: FDA-Public Use
  Company Number: None

PATIENT
  Age: 57 Year
  Sex: Female
  Weight: 43 kg

DRUGS (8)
  1. ETANERCEPT [Suspect]
     Active Substance: ETANERCEPT
     Indication: Rheumatoid arthritis
     Dosage: 50 MG WEEKLY
     Route: 058
     Dates: start: 20220315, end: 20220322
  2. ARAVA [Suspect]
     Active Substance: LEFLUNOMIDE
     Indication: Product used for unknown indication
     Dosage: ONE PILL DAILY
     Route: 048
     Dates: start: 20120112
  3. METHOTREXATE SODIUM [Suspect]
     Active Substance: METHOTREXATE SODIUM
     Indication: Product used for unknown indication
     Dosage: 22.5 MILLIGRAMS; WEEKLY
     Route: 048
     Dates: start: 20220315
  4. FOSAVANCE [Concomitant]
     Active Substance: ALENDRONATE SODIUM\CHOLECALCIFEROL
     Indication: Product used for unknown indication
     Dosage: ONE PILL- BIWEEKLY
     Route: 048
     Dates: start: 20120115
  5. PREDNISOLONE [Concomitant]
     Active Substance: PREDNISOLONE
     Indication: Product used for unknown indication
     Dosage: 5 MG; DAILY
     Route: 065
     Dates: start: 20140626
  6. FOLIC ACID [Concomitant]
     Active Substance: FOLIC ACID
     Indication: Product used for unknown indication
     Dosage: TWO TABLETS WEEKLY
     Route: 048
     Dates: start: 20090615
  7. NEXIUM [Concomitant]
     Active Substance: ESOMEPRAZOLE MAGNESIUM
     Indication: Product used for unknown indication
     Dosage: ONE TABLET DAILY
     Route: 048
     Dates: start: 20090615
  8. CALCIUM CARBONATE\CHOLECALCIFEROL [Concomitant]
     Active Substance: CALCIUM CARBONATE\CHOLECALCIFEROL
     Indication: Product used for unknown indication
     Dosage: ONE TABLET DAILY, STRENGTH 1500 MG + 400 U.I
     Route: 048
     Dates: start: 20090615

REACTIONS (5)
  - Eczema [Recovered/Resolved]
  - Oral discomfort [Unknown]
  - Palpitations [Recovered/Resolved]
  - Skin exfoliation [Recovered/Resolved]
  - Drug interaction [Unknown]

NARRATIVE: CASE EVENT DATE: 20220317
